FAERS Safety Report 8120196-8 (Version None)
Quarter: 2012Q1

REPORT INFORMATION
  Report Type: 
  Country: None (occurrence: None)
  Receive Date: 20120207
  Receipt Date: 20120126
  Transmission Date: 20120608
  Serious: Yes (Death)
  Sender: FDA-Public Use
  Company Number: NL-CELGENEUS-114-21880-12012670

PATIENT

DRUGS (1)
  1. REVLIMID [Suspect]
     Indication: CASTLEMAN'S DISEASE
     Route: 048

REACTIONS (1)
  - DEATH [None]
